FAERS Safety Report 9465075 (Version 4)
Quarter: 2016Q2

REPORT INFORMATION
  Report Type: Report from Study
  Country: JP (occurrence: JP)
  Receive Date: 20130819
  Receipt Date: 20160407
  Transmission Date: 20160815
  Serious: Yes (Disabling)
  Sender: FDA-Public Use
  Company Number: JP-GILEAD-2013-0081574

PATIENT
  Age: 67 Year
  Sex: Female
  Weight: 39 kg

DRUGS (19)
  1. CLARITH [Concomitant]
     Active Substance: CLARITHROMYCIN
     Dosage: 200 MG, QD
  2. GASMOTIN [Concomitant]
     Active Substance: MOSAPRIDE CITRATE
     Dosage: UNK
     Dates: start: 20130204
  3. CLARITH [Concomitant]
     Active Substance: CLARITHROMYCIN
     Dosage: 200MG PER DAY
     Route: 048
  4. NEXIUM [Concomitant]
     Active Substance: ESOMEPRAZOLE MAGNESIUM
     Dosage: UNK
     Dates: start: 20130204
  5. AMBRISENTAN [Suspect]
     Active Substance: AMBRISENTAN
     Dosage: 2.5 MG, QD
     Route: 048
     Dates: start: 20120611, end: 20120709
  6. CLARITH [Concomitant]
     Active Substance: CLARITHROMYCIN
     Indication: ATYPICAL MYCOBACTERIAL INFECTION
     Dosage: 200MG PER DAY
     Route: 048
  7. PRIMPERAN [Concomitant]
     Active Substance: METOCLOPRAMIDE HYDROCHLORIDE
     Dosage: UNK
     Dates: start: 20130204
  8. AMBRISENTAN [Suspect]
     Active Substance: AMBRISENTAN
     Dosage: 2.5 MG, TID
     Route: 048
     Dates: start: 20121016, end: 20130107
  9. AMBRISENTAN [Suspect]
     Active Substance: AMBRISENTAN
     Dosage: 2.5 MG, TID
     Route: 048
     Dates: start: 20130528
  10. JUVELA N [Concomitant]
     Active Substance: TOCOPHERYL NICOTINATE, D-.ALPHA.
     Dosage: UNK
     Dates: end: 20120806
  11. XYZAL [Concomitant]
     Active Substance: LEVOCETIRIZINE DIHYDROCHLORIDE
     Dosage: UNK
     Dates: start: 20130311, end: 20130527
  12. AMBRISENTAN [Suspect]
     Active Substance: AMBRISENTAN
     Indication: PULMONARY HYPERTENSION
     Dosage: 5 MG, QD
     Route: 048
     Dates: start: 20120611
  13. AMBRISENTAN [Suspect]
     Active Substance: AMBRISENTAN
     Dosage: 2.5 MG, BID
     Route: 048
     Dates: start: 20120710, end: 20121015
  14. REVATIO [Suspect]
     Active Substance: SILDENAFIL CITRATE
     Indication: PULMONARY HYPERTENSION
     Dosage: UNK
     Route: 048
     Dates: start: 20130108, end: 20130401
  15. CODEINE PHOSPHATE [Concomitant]
     Active Substance: CODEINE PHOSPHATE
     Dosage: UNK
  16. MUCODYNE [Concomitant]
     Active Substance: CARBOCYSTEINE
     Dosage: UNK
     Dates: start: 20121210
  17. AMBRISENTAN [Suspect]
     Active Substance: AMBRISENTAN
     Dosage: 2.5 MG, BID
     Route: 048
     Dates: start: 20130108, end: 20130527
  18. CARELOAD [Suspect]
     Active Substance: BERAPROST SODIUM
     Indication: PULMONARY HYPERTENSION
     Dosage: 120 ?G, BID
     Route: 048
  19. CLARITH [Concomitant]
     Active Substance: CLARITHROMYCIN
     Dosage: 200 MG, QD

REACTIONS (7)
  - Visual field defect [Recovered/Resolved]
  - Hypotension [Unknown]
  - Dizziness postural [Recovered/Resolved]
  - Visual field defect [Recovered/Resolved]
  - Haemoptysis [Recovered/Resolved]
  - Orthostatic hypotension [Unknown]
  - Abdominal discomfort [Recovered/Resolved]

NARRATIVE: CASE EVENT DATE: 201207
